FAERS Safety Report 6103687-0 (Version None)
Quarter: 2009Q1

REPORT INFORMATION
  Report Type: 
  Country: None (occurrence: None)
  Receive Date: 20090305
  Receipt Date: 20090302
  Transmission Date: 20090719
  Serious: Yes (Other)
  Sender: FDA-Public Use
  Company Number: AU-AVENTIS-200910998EU

PATIENT
  Age: 61 Year
  Sex: Female

DRUGS (5)
  1. CLEXANE [Suspect]
  2. ARANESP [Suspect]
  3. EPREX [Suspect]
  4. ROCALTROL [Suspect]
  5. ALUTAB [Suspect]

REACTIONS (1)
  - GASTROINTESTINAL CARCINOMA [None]
